FAERS Safety Report 5296975-1 (Version None)
Quarter: 2007Q1

REPORT INFORMATION
  Report Type: 
  Country: None (occurrence: None)
  Receive Date: 20070201
  Receipt Date: 20061017
  Transmission Date: 20070707
  Serious: No
  Sender: FDA-Public Use
  Company Number: 2006PV023429

PATIENT
  Age: 50 Year
  Sex: Female
  Weight: 108.8633 kg

DRUGS (6)
  1. BYETTA [Suspect]
     Indication: DIABETES MELLITUS NON-INSULIN-DEPENDENT
     Dosage: SEE IMAGE
     Route: 058
     Dates: start: 20060722, end: 20060907
  2. BYETTA [Suspect]
     Indication: DIABETES MELLITUS NON-INSULIN-DEPENDENT
     Dosage: SEE IMAGE
     Route: 058
     Dates: start: 20060908
  3. AVANDIA [Concomitant]
  4. METFORMIN HCL [Concomitant]
  5. SOMA [Concomitant]
  6. VITAMIN WITH MORE VITAMIN C [Concomitant]

REACTIONS (4)
  - GAIT DISTURBANCE [None]
  - INADEQUATE ANALGESIA [None]
  - MYALGIA [None]
  - WEIGHT DECREASED [None]
